FAERS Safety Report 5928593-3 (Version None)
Quarter: 2008Q3

REPORT INFORMATION
  Report Type: 
  Country: None (occurrence: None)
  Receive Date: 20080923
  Receipt Date: 20080306
  Transmission Date: 20090109
  Serious: Yes (Hospitalization)
  Sender: FDA-Public Use
  Company Number: WAES 0803USA00966

PATIENT
  Sex: Female

DRUGS (3)
  1. VYTORIN [Suspect]
     Dosage: 10-40 MG/UNK/PO
     Route: 048
  2. LANTUS [Concomitant]
  3. GLIPIZIDE [Concomitant]

REACTIONS (2)
  - BLOOD CREATINE PHOSPHOKINASE INCREASED [None]
  - FEELING ABNORMAL [None]
